FAERS Safety Report 12204964 (Version 1)
Quarter: 2016Q1

REPORT INFORMATION
  Report Type: Spontaneous
  Country: US (occurrence: US)
  Receive Date: 20160323
  Receipt Date: 20160323
  Transmission Date: 20160526
  Serious: No
  Sender: FDA-Public Use
  Company Number: US-MYLANLABS-2015M1010029

PATIENT
  Sex: Female

DRUGS (1)
  1. TAMOXIFEN CITRATE TABLETS, USP [Suspect]
     Active Substance: TAMOXIFEN
     Dosage: UNK
     Route: 048
     Dates: start: 2015

REACTIONS (2)
  - Irritable bowel syndrome [Not Recovered/Not Resolved]
  - Reaction to drug excipients [Not Recovered/Not Resolved]

NARRATIVE: CASE EVENT DATE: 2015
